FAERS Safety Report 23295798 (Version 1)
Quarter: 2023Q4

REPORT INFORMATION
  Report Type: Spontaneous
  Country: US (occurrence: US)
  Receive Date: 20231214
  Receipt Date: 20231214
  Transmission Date: 20240110
  Serious: No
  Sender: FDA-Public Use
  Company Number: US-SANDOZ-SDZ2023US067137

PATIENT
  Sex: Male

DRUGS (1)
  1. TRIAMCINOLONE ACETONIDE [Suspect]
     Active Substance: TRIAMCINOLONE ACETONIDE
     Indication: Product used for unknown indication
     Dosage: UNK
     Route: 065

REACTIONS (7)
  - Therapeutic product effect incomplete [Unknown]
  - Psoriasis [Unknown]
  - Swelling [Unknown]
  - Rash erythematous [Unknown]
  - Pruritus [Unknown]
  - Erythema [Unknown]
  - Psoriasis [Unknown]
